FAERS Safety Report 16548666 (Version 1)
Quarter: 2019Q3

REPORT INFORMATION
  Report Type: Spontaneous
  Country: US (occurrence: US)
  Receive Date: 20190709
  Receipt Date: 20190709
  Transmission Date: 20191004
  Serious: No
  Sender: FDA-Public Use
  Company Number: US-IBSA PHARMA-TSO-2019-0025

PATIENT
  Age: 66 Year
  Sex: Female

DRUGS (2)
  1. TIROSINT-SOL [Suspect]
     Active Substance: LEVOTHYROXINE SODIUM
     Indication: THYROIDECTOMY
     Dosage: 50MCG/ML DAILY
     Route: 048
     Dates: start: 201904, end: 201904
  2. TIROSINT-SOL [Suspect]
     Active Substance: LEVOTHYROXINE SODIUM
     Indication: THYROIDECTOMY
     Dosage: 25MCG/ML DAILY
     Route: 048
     Dates: start: 201904

REACTIONS (6)
  - Palpitations [Recovered/Resolved]
  - Flushing [Recovered/Resolved]
  - Nervousness [Not Recovered/Not Resolved]
  - Hypoaesthesia [Recovered/Resolved]
  - Chills [Recovered/Resolved]
  - Tinnitus [Recovered/Resolved]

NARRATIVE: CASE EVENT DATE: 201904
